FAERS Safety Report 9824006 (Version 2)
Quarter: 2014Q1

REPORT INFORMATION
  Report Type: Spontaneous
  Country: US (occurrence: US)
  Receive Date: 20140116
  Receipt Date: 20140116
  Transmission Date: 20141002
  Serious: No
  Sender: FDA-Public Use
  Company Number: US-GILEAD-2011-0038396

PATIENT
  Sex: Female

DRUGS (20)
  1. LETAIRIS [Suspect]
     Indication: PULMONARY HYPERTENSION
     Route: 048
     Dates: start: 20081117
  2. LETAIRIS [Suspect]
     Indication: HYPOXIA
  3. LETAIRIS [Suspect]
     Indication: PORTAL HYPERTENSION
  4. LETAIRIS [Suspect]
     Indication: FIBROSIS
  5. REVATIO [Concomitant]
  6. CRESTOR [Concomitant]
  7. FLECAINIDE [Concomitant]
  8. LASIX [Concomitant]
  9. WARFARIN [Concomitant]
  10. KLOR-KON [Concomitant]
  11. BROVANA [Concomitant]
  12. SPIRIVA [Concomitant]
  13. ZYFLO CR [Concomitant]
  14. FLONASE [Concomitant]
  15. LODRANE [Concomitant]
  16. SULFAMETHOXAZOLE/TRIMETHOPRIM [Concomitant]
  17. BACTROBAN [Concomitant]
  18. PREDNISONE [Concomitant]
  19. CALCIUM [Concomitant]
  20. MULTIVITAMIN [Concomitant]

REACTIONS (2)
  - Blood pressure decreased [Recovered/Resolved]
  - Dizziness [Recovered/Resolved]
